FAERS Safety Report 9314243 (Version 1)
Quarter: 2013Q2

REPORT INFORMATION
  Report Type: Spontaneous
  Country: US (occurrence: US)
  Receive Date: 20130529
  Receipt Date: 20130529
  Transmission Date: 20140414
  Serious: Yes (Other)
  Sender: FDA-Public Use
  Company Number: PHHY2013US050692

PATIENT
  Age: 50 Year
  Sex: Female

DRUGS (4)
  1. ZOMETA [Suspect]
     Indication: PLASMA CELL MYELOMA
     Dosage: MONTHLY
     Route: 042
     Dates: end: 200910
  2. METOPROLOL [Concomitant]
  3. ALBUTEROL [Concomitant]
  4. DIVALPROEX SODIUM [Concomitant]

REACTIONS (12)
  - Osteonecrosis of jaw [Unknown]
  - Face oedema [Unknown]
  - Exposed bone in jaw [Unknown]
  - Purulent discharge [Unknown]
  - Paraesthesia [Unknown]
  - Fistula [Unknown]
  - Stomatitis [Unknown]
  - Impaired healing [Unknown]
  - Osteomyelitis [Unknown]
  - Fracture [Unknown]
  - Soft tissue inflammation [Unknown]
  - Stress [Unknown]
